FAERS Safety Report 25555465 (Version 1)
Quarter: 2025Q3

REPORT INFORMATION
  Report Type: Spontaneous
  Country: EU (occurrence: EU)
  Receive Date: 20250715
  Receipt Date: 20250715
  Transmission Date: 20251020
  Serious: Yes (Hospitalization)
  Sender: MYLAN
  Company Number: None

PATIENT
  Age: 40 Year
  Sex: Male
  Weight: 59 kg

DRUGS (24)
  1. TRAMADOL HYDROCHLORIDE [Suspect]
     Active Substance: TRAMADOL HYDROCHLORIDE
     Indication: Analgesic therapy
     Dosage: 2 DOSAGE FORM, QD (1 CAPSULE MORNING AND EVENING)
     Dates: start: 20250315, end: 20250403
  2. TRAMADOL HYDROCHLORIDE [Suspect]
     Active Substance: TRAMADOL HYDROCHLORIDE
     Dosage: 2 DOSAGE FORM, QD (1 CAPSULE MORNING AND EVENING)
     Route: 048
     Dates: start: 20250315, end: 20250403
  3. TRAMADOL HYDROCHLORIDE [Suspect]
     Active Substance: TRAMADOL HYDROCHLORIDE
     Dosage: 2 DOSAGE FORM, QD (1 CAPSULE MORNING AND EVENING)
     Route: 048
     Dates: start: 20250315, end: 20250403
  4. TRAMADOL HYDROCHLORIDE [Suspect]
     Active Substance: TRAMADOL HYDROCHLORIDE
     Dosage: 2 DOSAGE FORM, QD (1 CAPSULE MORNING AND EVENING)
     Dates: start: 20250315, end: 20250403
  5. CHLORPROMAZINE [Suspect]
     Active Substance: CHLORPROMAZINE
     Indication: Analgesic therapy
     Dosage: 200 MILLIGRAM, QD (50 MG MORNING, 50 MG MIDDAY AND 100 MG IN THE EVENING)
     Dates: start: 20250314, end: 20250315
  6. CHLORPROMAZINE [Suspect]
     Active Substance: CHLORPROMAZINE
     Dosage: 200 MILLIGRAM, QD (50 MG MORNING, 50 MG MIDDAY AND 100 MG IN THE EVENING)
     Dates: start: 20250314, end: 20250315
  7. CHLORPROMAZINE [Suspect]
     Active Substance: CHLORPROMAZINE
     Dosage: 200 MILLIGRAM, QD (50 MG MORNING, 50 MG MIDDAY AND 100 MG IN THE EVENING)
     Route: 048
     Dates: start: 20250314, end: 20250315
  8. CHLORPROMAZINE [Suspect]
     Active Substance: CHLORPROMAZINE
     Dosage: 200 MILLIGRAM, QD (50 MG MORNING, 50 MG MIDDAY AND 100 MG IN THE EVENING)
     Route: 048
     Dates: start: 20250314, end: 20250315
  9. CHLORPROMAZINE [Suspect]
     Active Substance: CHLORPROMAZINE
     Dosage: 400 MILLIGRAM, QD (UP TO 4 TIMES 100 MG PER DAY)
     Dates: start: 20250315, end: 20250321
  10. CHLORPROMAZINE [Suspect]
     Active Substance: CHLORPROMAZINE
     Dosage: 400 MILLIGRAM, QD (UP TO 4 TIMES 100 MG PER DAY)
     Dates: start: 20250315, end: 20250321
  11. CHLORPROMAZINE [Suspect]
     Active Substance: CHLORPROMAZINE
     Dosage: 400 MILLIGRAM, QD (UP TO 4 TIMES 100 MG PER DAY)
     Route: 048
     Dates: start: 20250315, end: 20250321
  12. CHLORPROMAZINE [Suspect]
     Active Substance: CHLORPROMAZINE
     Dosage: 400 MILLIGRAM, QD (UP TO 4 TIMES 100 MG PER DAY)
     Route: 048
     Dates: start: 20250315, end: 20250321
  13. CHLORPROMAZINE [Suspect]
     Active Substance: CHLORPROMAZINE
     Dosage: 200 MILLIGRAM, QD (50 MG IN THE MORNING, 50 MG AT MIDDAY, AND 100 MG IN THE EVENING)
     Dates: start: 20250321, end: 20250322
  14. CHLORPROMAZINE [Suspect]
     Active Substance: CHLORPROMAZINE
     Dosage: 200 MILLIGRAM, QD (50 MG IN THE MORNING, 50 MG AT MIDDAY, AND 100 MG IN THE EVENING)
     Dates: start: 20250321, end: 20250322
  15. CHLORPROMAZINE [Suspect]
     Active Substance: CHLORPROMAZINE
     Dosage: 200 MILLIGRAM, QD (50 MG IN THE MORNING, 50 MG AT MIDDAY, AND 100 MG IN THE EVENING)
     Route: 048
     Dates: start: 20250321, end: 20250322
  16. CHLORPROMAZINE [Suspect]
     Active Substance: CHLORPROMAZINE
     Dosage: 200 MILLIGRAM, QD (50 MG IN THE MORNING, 50 MG AT MIDDAY, AND 100 MG IN THE EVENING)
     Route: 048
     Dates: start: 20250321, end: 20250322
  17. CHLORPROMAZINE [Suspect]
     Active Substance: CHLORPROMAZINE
     Dosage: 100 MILLIGRAM, QD (25 MG IN THE MORNING, 25 MG AT MIDDAY, AND 50 MG IN THE EVENING)
     Dates: start: 20250322, end: 20250325
  18. CHLORPROMAZINE [Suspect]
     Active Substance: CHLORPROMAZINE
     Dosage: 100 MILLIGRAM, QD (25 MG IN THE MORNING, 25 MG AT MIDDAY, AND 50 MG IN THE EVENING)
     Dates: start: 20250322, end: 20250325
  19. CHLORPROMAZINE [Suspect]
     Active Substance: CHLORPROMAZINE
     Dosage: 100 MILLIGRAM, QD (25 MG IN THE MORNING, 25 MG AT MIDDAY, AND 50 MG IN THE EVENING)
     Route: 048
     Dates: start: 20250322, end: 20250325
  20. CHLORPROMAZINE [Suspect]
     Active Substance: CHLORPROMAZINE
     Dosage: 100 MILLIGRAM, QD (25 MG IN THE MORNING, 25 MG AT MIDDAY, AND 50 MG IN THE EVENING)
     Route: 048
     Dates: start: 20250322, end: 20250325
  21. CHLORPROMAZINE [Suspect]
     Active Substance: CHLORPROMAZINE
     Dosage: 25 MILLIGRAM, QD (25 MG IN THE EVENING)
     Dates: start: 20250325, end: 20250331
  22. CHLORPROMAZINE [Suspect]
     Active Substance: CHLORPROMAZINE
     Dosage: 25 MILLIGRAM, QD (25 MG IN THE EVENING)
     Route: 048
     Dates: start: 20250325, end: 20250331
  23. CHLORPROMAZINE [Suspect]
     Active Substance: CHLORPROMAZINE
     Dosage: 25 MILLIGRAM, QD (25 MG IN THE EVENING)
     Dates: start: 20250325, end: 20250331
  24. CHLORPROMAZINE [Suspect]
     Active Substance: CHLORPROMAZINE
     Dosage: 25 MILLIGRAM, QD (25 MG IN THE EVENING)
     Route: 048
     Dates: start: 20250325, end: 20250331

REACTIONS (2)
  - Sedation [Recovered/Resolved]
  - Confusional state [Recovered/Resolved]

NARRATIVE: CASE EVENT DATE: 20250321
